FAERS Safety Report 16116453 (Version 2)
Quarter: 2025Q3

REPORT INFORMATION
  Report Type: Spontaneous
  Country: EU (occurrence: EU)
  Receive Date: 20190326
  Receipt Date: 20250716
  Transmission Date: 20251021
  Serious: Yes (Death, Hospitalization, Other)
  Sender: AUROBINDO
  Company Number: EU-AUROBINDO-AUR-APL-2019-015741

PATIENT
  Age: 76 Year
  Sex: Female

DRUGS (1)
  1. PREDNISONE [Suspect]
     Active Substance: PREDNISONE
     Indication: Polymyalgia rheumatica
     Route: 065
     Dates: start: 2009

REACTIONS (19)
  - Respiratory failure [Fatal]
  - Meningitis listeria [Fatal]
  - Sepsis [Fatal]
  - Cerebral infarction [Fatal]
  - Altered state of consciousness [Fatal]
  - CNS ventriculitis [Fatal]
  - Headache [Fatal]
  - Encephalitis [Fatal]
  - Cerebral haemorrhage [Fatal]
  - Musculoskeletal stiffness [Fatal]
  - Cell death [Fatal]
  - Ventricular hypertrophy [Fatal]
  - Disorientation [Fatal]
  - Facial paralysis [Fatal]
  - Cerebral artery thrombosis [Fatal]
  - Brain oedema [Fatal]
  - Emphysema [Fatal]
  - Vomiting [Fatal]
  - Brain abscess [Not Recovered/Not Resolved]

NARRATIVE: CASE EVENT DATE: 20090101
